FAERS Safety Report 4578250-3 (Version None)
Quarter: 2005Q1

REPORT INFORMATION
  Report Type: 
  Country: None (occurrence: None)
  Receive Date: 20050202
  Receipt Date: 20050202
  Transmission Date: 20050727
  Serious: No
  Sender: FDA-Public Use
  Company Number: None

PATIENT
  Sex: Female

DRUGS (1)
  1. CLONIDINE [Suspect]
     Indication: HYPERTENSION
     Dosage: PO BID
     Route: 048
     Dates: start: 20041001

REACTIONS (3)
  - DIZZINESS [None]
  - HEADACHE [None]
  - MYALGIA [None]
